FAERS Safety Report 21673016 (Version 1)
Quarter: 2022Q4

REPORT INFORMATION
  Report Type: Spontaneous
  Country: US (occurrence: None)
  Receive Date: 20221201
  Receipt Date: 20221201
  Transmission Date: 20230113
  Serious: No
  Sender: FDA-Public Use
  Company Number: None

PATIENT
  Age: 59 Year
  Sex: Female

DRUGS (4)
  1. HUMIRA [Suspect]
     Active Substance: ADALIMUMAB
     Indication: Uveitis
     Dosage: INJECT 40MG SUBCUTANEOUSLY EVERY 2 WEEKS AS DIRECTED.
     Route: 058
     Dates: start: 202104
  2. LISINOPRIL [Suspect]
     Active Substance: LISINOPRIL
  3. PRAZOSIN [Suspect]
     Active Substance: PRAZOSIN
  4. METOPROLOL [Suspect]
     Active Substance: METOPROLOL

REACTIONS (3)
  - Chest pain [None]
  - Cardiac disorder [None]
  - Therapy cessation [None]
